FAERS Safety Report 23720019 (Version 1)
Quarter: 2024Q2

REPORT INFORMATION
  Report Type: Spontaneous
  Country: US (occurrence: US)
  Receive Date: 20240408
  Receipt Date: 20240408
  Transmission Date: 20240716
  Serious: Yes (Other)
  Sender: FDA-Public Use
  Company Number: US-TRAVERE-2024TVT00326

PATIENT
  Sex: Female

DRUGS (1)
  1. FILSPARI [Suspect]
     Active Substance: SPARSENTAN
     Indication: Focal segmental glomerulosclerosis
     Dosage: 200 MG TABLETS, 2 TABLETS BY MOUTH DAILY
     Route: 048

REACTIONS (2)
  - Renal failure [Unknown]
  - Product use in unapproved indication [Unknown]
